FAERS Safety Report 18250367 (Version 2)
Quarter: 2020Q4

REPORT INFORMATION
  Report Type: Spontaneous
  Country: IT (occurrence: IT)
  Receive Date: 20200909
  Receipt Date: 20201023
  Transmission Date: 20210113
  Serious: Yes (Hospitalization)
  Sender: FDA-Public Use
  Company Number: IT-TEVA-2020-IT-1824490

PATIENT
  Age: 86 Year
  Sex: Female
  Weight: 80 kg

DRUGS (9)
  1. ALLOPURINOL. [Concomitant]
     Active Substance: ALLOPURINOL
  2. TOTALIP 20 MG COMPRESSE RIVESTITE CON FILM [Concomitant]
  3. CANAGLIFLOZIN [Concomitant]
     Active Substance: CANAGLIFLOZIN
  4. ANASTROZOLE. [Concomitant]
     Active Substance: ANASTROZOLE
  5. METFORMIN HYDROCHLORIDE. [Suspect]
     Active Substance: METFORMIN HYDROCHLORIDE
     Indication: TYPE 2 DIABETES MELLITUS
     Dosage: 2000MILLIGRAM
     Route: 048
  6. CANDESARTAN CILEXETIL/IDROCLOROTIAZIDE [Concomitant]
     Active Substance: CANDESARTAN CILEXETIL\HYDROCHLOROTHIAZIDE
  7. BISOPROLOLO FUMARATO/IDROCLOROTIAZIDE [Concomitant]
  8. LANSOX [Concomitant]
     Active Substance: LANSOPRAZOLE
  9. CARDIOASPIRIN [Concomitant]
     Active Substance: ASPIRIN

REACTIONS (2)
  - Acute kidney injury [Unknown]
  - Lactic acidosis [Unknown]

NARRATIVE: CASE EVENT DATE: 20200710
